FAERS Safety Report 5367567-0 (Version None)
Quarter: 2007Q2

REPORT INFORMATION
  Report Type: 
  Country: None (occurrence: None)
  Receive Date: 20070622
  Receipt Date: 20061218
  Transmission Date: 20071010
  Serious: No
  Sender: FDA-Public Use
  Company Number: US-ASTRAZENECA-2006UW28133

PATIENT
  Age: 79 Year
  Sex: Male
  Weight: 83.9 kg

DRUGS (10)
  1. PULMICORT [Suspect]
     Indication: CHRONIC OBSTRUCTIVE PULMONARY DISEASE
     Route: 055
     Dates: start: 20061101, end: 20060101
  2. PULMICORT [Suspect]
     Route: 055
     Dates: start: 20060101
  3. DUONEB [Concomitant]
  4. HYDROCHLOROTHIAZIDE [Concomitant]
  5. LIPITOR [Concomitant]
  6. MULTIVITAMIN [Concomitant]
  7. LUBREX [Concomitant]
  8. STOOL SOFTNER [Concomitant]
  9. METOPROLOL SUCCINATE [Concomitant]
  10. ASPIRIN [Concomitant]

REACTIONS (2)
  - DYSPHONIA [None]
  - INCREASED UPPER AIRWAY SECRETION [None]
